FAERS Safety Report 7131294-X (Version None)
Quarter: 2010Q4

REPORT INFORMATION
  Report Type: 
  Country: None (occurrence: None)
  Receive Date: 20101201
  Receipt Date: 20101111
  Transmission Date: 20110411
  Serious: Yes (Other)
  Sender: FDA-Public Use
  Company Number: US-PFIZER INC-2010061668

PATIENT
  Age: 56 Year
  Sex: Female

DRUGS (2)
  1. CHILDREN'S MOTRIN [Suspect]
     Indication: HEADACHE
     Dosage: 300 MG, EVERY 6 HOURS EVERYDAY FOR 3 WEEKS
     Route: 048
     Dates: start: 20091001, end: 20100401
  2. MOTRIN [Concomitant]
     Indication: HEADACHE
     Dosage: 200 MG,1IN1 AS NEEDED
     Dates: start: 20100401

REACTIONS (7)
  - GASTRIC DISORDER [None]
  - INFECTION [None]
  - INFLUENZA LIKE ILLNESS [None]
  - INTENTIONAL DRUG MISUSE [None]
  - PRODUCT QUALITY ISSUE [None]
  - THROAT IRRITATION [None]
  - WRONG DRUG ADMINISTERED [None]
